FAERS Safety Report 5251155-0 (Version None)
Quarter: 2007Q1

REPORT INFORMATION
  Report Type: 
  Country: None (occurrence: None)
  Receive Date: 20061201
  Receipt Date: 20060821
  Transmission Date: 20070707
  Serious: No
  Sender: FDA-Public Use
  Company Number: 2006PV019818

PATIENT
  Age: 42 Year
  Sex: Female
  Weight: 93.8946 kg

DRUGS (2)
  1. BYETTA [Suspect]
     Indication: DIABETES MELLITUS NON-INSULIN-DEPENDENT
     Dosage: 5 MCG; BID; SC
     Route: 058
     Dates: start: 20060811
  2. GLOUCOVANCE [Concomitant]

REACTIONS (5)
  - ARTHROPOD STING [None]
  - INJECTION SITE URTICARIA [None]
  - RASH PRURITIC [None]
  - SKIN DISCOLOURATION [None]
  - WEIGHT DECREASED [None]
